FAERS Safety Report 23441037 (Version 1)
Quarter: 2024Q1

REPORT INFORMATION
  Report Type: Spontaneous
  Country: US (occurrence: US)
  Receive Date: 20240125
  Receipt Date: 20240125
  Transmission Date: 20240409
  Serious: Yes (Other)
  Sender: FDA-Public Use
  Company Number: US-ROCHE-3474241

PATIENT
  Age: 79 Year
  Sex: Female

DRUGS (4)
  1. CAPECITABINE [Suspect]
     Active Substance: CAPECITABINE
     Indication: Breast cancer female
     Route: 048
  2. HERCEPTIN [Suspect]
     Active Substance: TRASTUZUMAB
     Indication: Breast cancer female
  3. TUKYSA [Suspect]
     Active Substance: TUCATINIB
     Indication: Breast cancer female
  4. TUKYSA [Suspect]
     Active Substance: TUCATINIB
     Indication: Breast cancer female

REACTIONS (4)
  - Lung neoplasm malignant [Unknown]
  - Malaise [Unknown]
  - Diarrhoea [Unknown]
  - Product dose omission issue [Recovered/Resolved]
